FAERS Safety Report 8214562-X (Version None)
Quarter: 2012Q1

REPORT INFORMATION
  Report Type: 
  Country: None (occurrence: None)
  Receive Date: 20120316
  Receipt Date: 20120302
  Transmission Date: 20120608
  Serious: No
  Sender: FDA-Public Use
  Company Number: US-B.I. PHARMACEUTICALS,INC./RIDGEFIELD-2012-BP-04101BP

PATIENT
  Sex: Male

DRUGS (12)
  1. FINASTERIDE [Concomitant]
     Indication: PROSTATOMEGALY
     Dosage: 5 MG
  2. ATORVASTATIN [Concomitant]
     Indication: BLOOD CHOLESTEROL INCREASED
  3. LEVOTHYROXINE SODIUM [Concomitant]
     Indication: THYROID DISORDER
  4. TAMSULOSIN HCL [Concomitant]
     Indication: PROSTATOMEGALY
  5. ATENOLOL [Concomitant]
     Indication: HYPERTENSION
  6. ASPIRIN [Concomitant]
     Dosage: 162.5 MG
     Route: 048
  7. PREDNISONE TAB [Concomitant]
  8. SPIRIVA [Suspect]
     Dosage: 18 MCG
     Route: 055
     Dates: start: 20110401, end: 20110901
  9. FUROSEMIDE [Concomitant]
  10. LISINOPRIL [Concomitant]
     Indication: HYPERTENSION
  11. NEXIUM [Concomitant]
  12. CIMZIA [Concomitant]
     Indication: CROHN'S DISEASE

REACTIONS (3)
  - DRY MOUTH [None]
  - DYSPHONIA [None]
  - DYSPNOEA [None]
